FAERS Safety Report 7200085-3 (Version None)
Quarter: 2010Q4

REPORT INFORMATION
  Report Type: 
  Country: None (occurrence: None)
  Receive Date: 20101228
  Receipt Date: 20101222
  Transmission Date: 20110411
  Serious: No
  Sender: FDA-Public Use
  Company Number: NL-JNJFOC-20101207606

PATIENT
  Age: 63 Year
  Sex: Female

DRUGS (5)
  1. DURAGESIC-100 [Suspect]
     Indication: ARTHRALGIA
  2. DURAGESIC-100 [Suspect]
  3. ^INHALERS FOR ASTHMA^ [Concomitant]
     Indication: ASTHMA
     Route: 055
  4. AMLODIPINE [Concomitant]
     Indication: ILL-DEFINED DISORDER
     Route: 065
  5. DIAZEPAM [Concomitant]
     Indication: ILL-DEFINED DISORDER
     Route: 065

REACTIONS (5)
  - CHILLS [None]
  - DRUG PRESCRIBING ERROR [None]
  - INFLUENZA LIKE ILLNESS [None]
  - MALAISE [None]
  - PYREXIA [None]
